FAERS Safety Report 17776671 (Version 1)
Quarter: 2020Q2

REPORT INFORMATION
  Report Type: Spontaneous
  Country: US (occurrence: US)
  Receive Date: 20200513
  Receipt Date: 20200513
  Transmission Date: 20200714
  Serious: Yes (Hospitalization)
  Sender: FDA-Public Use
  Company Number: None

PATIENT
  Sex: Female

DRUGS (1)
  1. COPAXONE [Suspect]
     Active Substance: GLATIRAMER ACETATE
     Indication: MULTIPLE SCLEROSIS
     Route: 058
     Dates: start: 20130830

REACTIONS (8)
  - Hypersomnia [None]
  - Cellulitis [None]
  - Incoherent [None]
  - Pain in extremity [None]
  - Multiple sclerosis relapse [None]
  - Blood pressure fluctuation [None]
  - Body temperature decreased [None]
  - Limb injury [None]
